FAERS Safety Report 8560499-6 (Version None)
Quarter: 2012Q3

REPORT INFORMATION
  Report Type: 
  Country: None (occurrence: None)
  Receive Date: 20120802
  Receipt Date: 20120724
  Transmission Date: 20120928
  Serious: Yes (Hospitalization, Other)
  Sender: FDA-Public Use
  Company Number: US-ASTRAZENECA-2009UW06904

PATIENT
  Age: 88 Year
  Sex: Female

DRUGS (1)
  1. NEXIUM [Suspect]
     Route: 048

REACTIONS (5)
  - DERMATITIS CONTACT [None]
  - PNEUMONIA [None]
  - PHARYNGEAL ULCERATION [None]
  - MALAISE [None]
  - BLINDNESS [None]
